FAERS Safety Report 8235841-6 (Version None)
Quarter: 2012Q1

REPORT INFORMATION
  Report Type: 
  Country: None (occurrence: None)
  Receive Date: 20120326
  Receipt Date: 20120314
  Transmission Date: 20120608
  Serious: Yes (Other)
  Sender: FDA-Public Use
  Company Number: US-ABBOTT-12P-163-0915766-02

PATIENT
  Sex: Female

DRUGS (12)
  1. CHOLESTYRAMINE [Concomitant]
     Indication: DIARRHOEA
     Dates: start: 19930101
  2. METAMUCIL-2 [Concomitant]
     Indication: DIARRHOEA
     Dosage: 1 SCOOP TID
  3. IMITREX [Concomitant]
     Indication: MIGRAINE
     Dates: start: 19930101
  4. IMODIUM [Concomitant]
     Indication: DIARRHOEA
     Dates: start: 19930101
  5. ACYCLOVIR [Concomitant]
     Indication: RASH
     Dates: start: 19930101
  6. DARVOCET [Concomitant]
     Indication: ABDOMINAL PAIN
     Dates: start: 19930101
  7. DARVOCET [Concomitant]
     Indication: CROHN'S DISEASE
  8. METAMUCIL-2 [Concomitant]
     Indication: CROHN'S DISEASE
  9. CIPROFLOXACIN HYDROCHLORIDE [Concomitant]
     Indication: CROHN'S DISEASE
     Dates: start: 20090101
  10. HUMIRA [Suspect]
     Indication: CROHN'S DISEASE
     Route: 058
     Dates: end: 20091013
  11. ACYCLOVIR [Concomitant]
     Indication: PROPHYLAXIS
  12. COMMERCIAL HUMIRA [Concomitant]
     Indication: CROHN'S DISEASE
     Route: 058
     Dates: start: 20080826

REACTIONS (1)
  - CROHN'S DISEASE [None]
